FAERS Safety Report 5375081-1 (Version None)
Quarter: 2007Q2

REPORT INFORMATION
  Report Type: 
  Country: None (occurrence: None)
  Receive Date: 20070629
  Receipt Date: 20070430
  Transmission Date: 20071010
  Serious: Yes (Other)
  Sender: FDA-Public Use
  Company Number: US-PURDUE-USA_2007_0027666

PATIENT
  Sex: Male

DRUGS (2)
  1. OXYCONTIN [Suspect]
     Indication: DRUG EXPOSURE DURING PREGNANCY
     Dosage: UNK, SEE TEXT
     Dates: end: 20010515
  2. LORCET-HD [Suspect]
     Indication: DRUG EXPOSURE DURING PREGNANCY
     Dosage: UNK, SEE TEXT
     Dates: end: 20010515

REACTIONS (3)
  - ACOUSTIC STIMULATION TESTS ABNORMAL [None]
  - DRUG DEPENDENCE [None]
  - DRUG EXPOSURE DURING PREGNANCY [None]
